FAERS Safety Report 8272482-9 (Version None)
Quarter: 2012Q2

REPORT INFORMATION
  Report Type: 
  Country: None (occurrence: None)
  Receive Date: 20120410
  Receipt Date: 20120202
  Transmission Date: 20120825
  Serious: No
  Sender: FDA-Public Use
  Company Number: US-ASTRAZENECA-2012SE07671

PATIENT
  Age: 54 Year
  Sex: Male
  Weight: 137.9 kg

DRUGS (5)
  1. ACETAMINOPHEN [Concomitant]
  2. NEXIUM [Suspect]
     Indication: GASTRITIS PROPHYLAXIS
     Route: 017
     Dates: start: 20110129
  3. VITAMIN K TAB [Concomitant]
  4. SPIRONOLACTONE [Concomitant]
  5. ALBUTEROL [Concomitant]

REACTIONS (2)
  - BURNING SENSATION [None]
  - CHEST PAIN [None]
